FAERS Safety Report 6619656-8 (Version None)
Quarter: 2010Q1

REPORT INFORMATION
  Report Type: 
  Country: None (occurrence: None)
  Receive Date: 20100303
  Receipt Date: 20100216
  Transmission Date: 20100710
  Serious: Yes (Death, Hospitalization)
  Sender: FDA-Public Use
  Company Number: 2010020086

PATIENT
  Age: 20 Year
  Sex: Male

DRUGS (3)
  1. CARISOPRODOL [Suspect]
  2. FENTANYL [Suspect]
     Dosage: TRANSDERMAL
     Route: 062
  3. METHADONE HCL [Suspect]

REACTIONS (12)
  - ASPARTATE AMINOTRANSFERASE INCREASED [None]
  - BLOOD LACTIC ACID DECREASED [None]
  - CARDIAC ARREST [None]
  - DRUG ABUSE [None]
  - DRUG TOXICITY [None]
  - ISCHAEMIC HEPATITIS [None]
  - MULTI-ORGAN FAILURE [None]
  - NO THERAPEUTIC RESPONSE [None]
  - RENAL FAILURE ACUTE [None]
  - RESPIRATORY ARREST [None]
  - UNRESPONSIVE TO STIMULI [None]
  - WRONG TECHNIQUE IN DRUG USAGE PROCESS [None]
